FAERS Safety Report 14495337 (Version 1)
Quarter: 2018Q1

REPORT INFORMATION
  Report Type: Spontaneous
  Country: US (occurrence: US)
  Receive Date: 20180206
  Receipt Date: 20180206
  Transmission Date: 20180509
  Serious: No
  Sender: FDA-Public Use
  Company Number: US-SMITH AND NEPHEW, INC-2017SMT00355

PATIENT
  Age: 74 Year
  Sex: Male
  Weight: 86.17 kg

DRUGS (7)
  1. REGRANEX [Suspect]
     Active Substance: BECAPLERMIN
     Indication: WOUND
     Dosage: UNK
     Route: 061
     Dates: start: 20170517
  2. CARVEDILOL. [Concomitant]
     Active Substance: CARVEDILOL
  3. WARFARIN [Concomitant]
     Active Substance: WARFARIN
  4. RAPAMUNE [Concomitant]
     Active Substance: SIROLIMUS
  5. ALDACTAZIDE [Concomitant]
     Active Substance: HYDROCHLOROTHIAZIDE\SPIRONOLACTONE
  6. PRAVASTATIN. [Concomitant]
     Active Substance: PRAVASTATIN
  7. UNSPECIFIED VITAMINS [Concomitant]
     Active Substance: VITAMINS

REACTIONS (3)
  - Application site pain [Recovering/Resolving]
  - Product storage error [Unknown]
  - Application site discomfort [Recovering/Resolving]

NARRATIVE: CASE EVENT DATE: 20170517
